FAERS Safety Report 17482471 (Version 1)
Quarter: 2020Q1

REPORT INFORMATION
  Report Type: Spontaneous
  Country: GR (occurrence: GR)
  Receive Date: 20200302
  Receipt Date: 20200302
  Transmission Date: 20200409
  Serious: Yes (Hospitalization, Other)
  Sender: FDA-Public Use
  Company Number: NVSC2020GR057610

PATIENT
  Age: 79 Year
  Sex: Male

DRUGS (1)
  1. DEXAMETHASONE. [Suspect]
     Active Substance: DEXAMETHASONE
     Indication: NON-HODGKIN^S LYMPHOMA STAGE IV
     Dosage: UNK
     Route: 065

REACTIONS (11)
  - Pleural effusion [Unknown]
  - Musculoskeletal stiffness [Unknown]
  - Encephalitis [Unknown]
  - Dysarthria [Unknown]
  - Pneumonia cryptococcal [Unknown]
  - Skin necrosis [Unknown]
  - Altered state of consciousness [Unknown]
  - Lethargy [Unknown]
  - Confusional state [Unknown]
  - Eschar [Unknown]
  - Cryptococcal cutaneous infection [Unknown]
